FAERS Safety Report 8618989-3 (Version None)
Quarter: 2012Q3

REPORT INFORMATION
  Report Type: 
  Country: None (occurrence: None)
  Receive Date: 20120824
  Receipt Date: 20120815
  Transmission Date: 20120928
  Serious: Yes (Other)
  Sender: FDA-Public Use
  Company Number: PHHY2012BR072177

PATIENT
  Age: 69 Year
  Sex: Male

DRUGS (8)
  1. BUDESONIDE, FORMOTEROL FUMARATE [Suspect]
     Dosage: 400UG/ 12 UG, UNK
  2. THEOPHYLLINE [Concomitant]
     Dosage: 400 MG, DAILY
  3. TIOTROPIUM [Concomitant]
  4. SPIRONOLACTONE [Concomitant]
  5. INDACATEROL [Suspect]
     Dosage: 300 UG, UNK
  6. VALSARTAN [Concomitant]
     Indication: HYPERTENSION
  7. ROFLUMILAST [Concomitant]
  8. FUROSEMIDE [Concomitant]

REACTIONS (5)
  - PRODUCTIVE COUGH [None]
  - DYSPNOEA [None]
  - CHRONIC OBSTRUCTIVE PULMONARY DISEASE [None]
  - OBSTRUCTIVE AIRWAYS DISORDER [None]
  - BRONCHIAL WALL THICKENING [None]
